FAERS Safety Report 15043920 (Version 1)
Quarter: 2018Q2

REPORT INFORMATION
  Report Type: Spontaneous
  Country: DK (occurrence: DK)
  Receive Date: 20180621
  Receipt Date: 20180621
  Transmission Date: 20180711
  Serious: Yes (Hospitalization, Other)
  Sender: FDA-Public Use
  Company Number: DK-TEVA-2015-10912

PATIENT
  Age: 45 Year
  Sex: Female
  Weight: 62 kg

DRUGS (10)
  1. METRONIDAZOL ACTAVIS [Suspect]
     Active Substance: METRONIDAZOLE
     Indication: VAGINAL INFECTION
     Route: 065
     Dates: start: 20140424, end: 20140502
  2. FLUCONAZOL [Concomitant]
     Active Substance: FLUCONAZOLE
     Indication: VULVOVAGINAL MYCOTIC INFECTION
     Route: 065
     Dates: start: 20140115
  3. GABAPENTIN. [Concomitant]
     Active Substance: GABAPENTIN
     Indication: PRODUCT USED FOR UNKNOWN INDICATION
     Route: 065
     Dates: start: 201405
  4. MIRENA [Concomitant]
     Active Substance: LEVONORGESTREL
     Indication: PRODUCT USED FOR UNKNOWN INDICATION
     Route: 015
     Dates: start: 20130606
  5. TWINRIX [Suspect]
     Active Substance: HEPATITIS A VIRUS STRAIN HM175 ANTIGEN (FORMALDEHYDE INACTIVATED)\HEPATITIS B VIRUS SUBTYPE ADW2 HBSAG SURFACE PROTEIN ANTIGEN
     Indication: HEPATITIS A IMMUNISATION
     Route: 065
     Dates: start: 20140429, end: 20140429
  6. MORFIN                             /00036301/ [Concomitant]
     Active Substance: MORPHINE SULFATE
     Indication: PRODUCT USED FOR UNKNOWN INDICATION
     Route: 065
     Dates: start: 20140115
  7. BETNOVAT                           /00008501/ [Concomitant]
     Indication: PRODUCT USED FOR UNKNOWN INDICATION
     Route: 065
     Dates: start: 201404
  8. IMOVANE [Concomitant]
     Active Substance: ZOPICLONE
     Indication: PRODUCT USED FOR UNKNOWN INDICATION
     Route: 065
     Dates: start: 201405
  9. KODIPAR [Concomitant]
     Indication: PRODUCT USED FOR UNKNOWN INDICATION
     Route: 065
     Dates: start: 20140114
  10. DITEBOOSTER [Concomitant]
     Active Substance: CLOSTRIDIUM TETANI TOXOID ANTIGEN (FORMALDEHYDE INACTIVATED)\CORYNEBACTERIUM DIPHTHERIAE TOXOID ANTIGEN (FORMALDEHYDE INACTIVATED)
     Indication: PROPHYLAXIS
     Route: 065
     Dates: start: 201404

REACTIONS (21)
  - Pruritus [Recovering/Resolving]
  - Paraesthesia [Not Recovered/Not Resolved]
  - Pain in extremity [Not Recovered/Not Resolved]
  - Headache [Unknown]
  - Hyperventilation [Unknown]
  - Neuropathy peripheral [Not Recovered/Not Resolved]
  - Burning sensation [Not Recovered/Not Resolved]
  - Pain of skin [Not Recovered/Not Resolved]
  - Sensory disturbance [Unknown]
  - Facial pain [Not Recovered/Not Resolved]
  - Weight decreased [Recovered/Resolved]
  - Hyperhidrosis [Recovering/Resolving]
  - White blood cell count decreased [Recovered/Resolved]
  - Rash [Recovering/Resolving]
  - Vulval disorder [Unknown]
  - Sensory loss [Unknown]
  - Decreased appetite [Unknown]
  - Pain [Unknown]
  - Hypoaesthesia [Not Recovered/Not Resolved]
  - Genital haemorrhage [Unknown]
  - Vein disorder [Unknown]

NARRATIVE: CASE EVENT DATE: 20140428
